FAERS Safety Report 21482708 (Version 1)
Quarter: 2022Q4

REPORT INFORMATION
  Report Type: Spontaneous
  Country: JP (occurrence: JP)
  Receive Date: 20221020
  Receipt Date: 20221020
  Transmission Date: 20230112
  Serious: Yes (Other)
  Sender: FDA-Public Use
  Company Number: JP-AMGEN-JPNSP2022178641

PATIENT

DRUGS (2)
  1. ADALIMUMAB [Suspect]
     Active Substance: ADALIMUMAB
     Indication: Vogt-Koyanagi-Harada disease
     Dosage: UNK
     Route: 065
  2. CYCLOSPORINE [Concomitant]
     Active Substance: CYCLOSPORINE
     Indication: Product used for unknown indication
     Dosage: UNK
     Route: 065

REACTIONS (7)
  - Vogt-Koyanagi-Harada disease [Unknown]
  - Tuberculosis [Unknown]
  - Adverse event [Unknown]
  - Infection [Unknown]
  - Drug effective for unapproved indication [Unknown]
  - Psoriasis [Unknown]
  - Off label use [Unknown]
